FAERS Safety Report 22362284 (Version 1)
Quarter: 2023Q2

REPORT INFORMATION
  Report Type: Spontaneous
  Country: CA (occurrence: CA)
  Receive Date: 20230524
  Receipt Date: 20230524
  Transmission Date: 20230721
  Serious: Yes (Life-Threatening, Hospitalization)
  Sender: FDA-Public Use
  Company Number: CA-PFIZER INC-202300198818

PATIENT
  Age: 3 Year
  Sex: Female
  Weight: 12 kg

DRUGS (4)
  1. METHOTREXATE SODIUM [Suspect]
     Active Substance: METHOTREXATE SODIUM
  2. CYTARABINE [Suspect]
     Active Substance: CYTARABINE
  3. VINCRISTINE SULFATE [Suspect]
     Active Substance: VINCRISTINE SULFATE
  4. PEGASPARGASE [Suspect]
     Active Substance: PEGASPARGASE
     Route: 042

REACTIONS (1)
  - Febrile neutropenia [Recovering/Resolving]
